FAERS Safety Report 24928881 (Version 1)
Quarter: 2025Q1

REPORT INFORMATION
  Report Type: Spontaneous
  Country: US (occurrence: US)
  Receive Date: 20250205
  Receipt Date: 20250205
  Transmission Date: 20250409
  Serious: Yes (Other)
  Sender: pharmaAND
  Company Number: US-Pharmaand-2024000028

PATIENT
  Sex: Female
  Weight: 86 kg

DRUGS (1)
  1. RUBRACA [Suspect]
     Active Substance: RUCAPARIB CAMSYLATE
     Indication: Ovarian cancer
     Dates: start: 202208, end: 202401

REACTIONS (1)
  - Ovarian cancer recurrent [Unknown]
